FAERS Safety Report 16609449 (Version 1)
Quarter: 2019Q3

REPORT INFORMATION
  Report Type: Spontaneous
  Country: US (occurrence: US)
  Receive Date: 20190607
  Receipt Date: 20190607
  Transmission Date: 20191004
  Serious: No
  Sender: FDA-Public Use
  Company Number: None

PATIENT
  Age: 65 Year
  Sex: Male
  Weight: 79.38 kg

DRUGS (1)
  1. SIROLIMUS. [Suspect]
     Active Substance: SIROLIMUS
     Indication: RENAL TRANSPLANT
     Route: 048
     Dates: start: 201712

REACTIONS (1)
  - Swelling [None]

NARRATIVE: CASE EVENT DATE: 201903
